FAERS Safety Report 16283085 (Version 1)
Quarter: 2019Q2

REPORT INFORMATION
  Report Type: Spontaneous
  Country: US (occurrence: US)
  Receive Date: 20190507
  Receipt Date: 20190507
  Transmission Date: 20190711
  Serious: Yes (Other)
  Sender: FDA-Public Use
  Company Number: US-ASTRAZENECA-2019SE11292

PATIENT
  Sex: Female
  Weight: 126.1 kg

DRUGS (9)
  1. NORVASC [Concomitant]
     Active Substance: AMLODIPINE BESYLATE
  2. RENVELA [Concomitant]
     Active Substance: SEVELAMER CARBONATE
  3. NOVOLOG [Concomitant]
     Active Substance: INSULIN ASPART
  4. GABAPENTIN. [Concomitant]
     Active Substance: GABAPENTIN
  5. PRILOSEC OTC [Suspect]
     Active Substance: OMEPRAZOLE MAGNESIUM
     Route: 048
  6. LIQUACEL [Concomitant]
  7. DEXTROSE. [Concomitant]
     Active Substance: DEXTROSE
  8. ASPIRIN. [Concomitant]
     Active Substance: ASPIRIN
  9. CLONIDINE. [Concomitant]
     Active Substance: CLONIDINE

REACTIONS (6)
  - Renal injury [Unknown]
  - Nephrogenic anaemia [Unknown]
  - Rebound acid hypersecretion [Unknown]
  - Chronic kidney disease [Unknown]
  - Renal failure [Unknown]
  - End stage renal disease [Unknown]
